FAERS Safety Report 7427045-1 (Version None)
Quarter: 2011Q2

REPORT INFORMATION
  Report Type: 
  Country: None (occurrence: None)
  Receive Date: 20110420
  Receipt Date: 20110420
  Transmission Date: 20111010
  Serious: Yes (Other)
  Sender: FDA-Public Use
  Company Number: JP-PFIZER INC-2011086169

PATIENT
  Age: 77 Year
  Sex: Male

DRUGS (2)
  1. LIPITOR [Suspect]
     Dosage: 10 MG, UNKNOWN/D
     Route: 048
     Dates: start: 20080101
  2. ALINAMIN [Concomitant]
     Dosage: UNK

REACTIONS (1)
  - PLATELET COUNT DECREASED [None]
